FAERS Safety Report 7539518-1 (Version None)
Quarter: 2011Q2

REPORT INFORMATION
  Report Type: 
  Country: None (occurrence: None)
  Receive Date: 20110610
  Receipt Date: 20110606
  Transmission Date: 20111010
  Serious: Yes (Other)
  Sender: FDA-Public Use
  Company Number: US-PFIZER INC-2011123383

PATIENT
  Sex: Male
  Weight: 111 kg

DRUGS (7)
  1. LIPITOR [Concomitant]
     Dosage: 10 MG, UNK
  2. ALLOPURINOL [Concomitant]
     Dosage: 100 MG, UNK
  3. SUTENT [Suspect]
     Dosage: 50 MG 1 CAPSULE EVERY DAY FOR 28 DAYS ON AND 14 DAYS OFF
     Route: 048
  4. TAPENTADOL [Concomitant]
     Dosage: 50 MG, UNK
  5. ZANAFLEX [Concomitant]
     Dosage: 4 MG, UNK
  6. NEURONTIN [Concomitant]
     Dosage: 400 MG, UNK
  7. ATENOLOL [Concomitant]
     Dosage: 25 MG, UNK

REACTIONS (3)
  - CARDIOVASCULAR DISORDER [None]
  - RENAL DISORDER [None]
  - URINARY TRACT DISORDER [None]
